FAERS Safety Report 21106356 (Version 3)
Quarter: 2022Q3

REPORT INFORMATION
  Report Type: Spontaneous
  Country: US (occurrence: US)
  Receive Date: 20220720
  Receipt Date: 20220808
  Transmission Date: 20221027
  Serious: No
  Sender: FDA-Public Use
  Company Number: US-PFIZER INC-PV202200025261

PATIENT
  Sex: Male

DRUGS (2)
  1. VIAGRA [Suspect]
     Active Substance: SILDENAFIL CITRATE
     Indication: Libido disorder
     Dosage: UNK
     Dates: start: 202204, end: 202204
  2. VIAGRA [Suspect]
     Active Substance: SILDENAFIL CITRATE
     Dosage: 100 MG, 1X/DAY
     Dates: end: 202206

REACTIONS (4)
  - Penile odour [Unknown]
  - Penis disorder [Unknown]
  - Smegma accumulation [Unknown]
  - Off label use [Unknown]

NARRATIVE: CASE EVENT DATE: 20220401
